FAERS Safety Report 16895844 (Version 1)
Quarter: 2019Q4

REPORT INFORMATION
  Report Type: Spontaneous
  Country: US (occurrence: US)
  Receive Date: 20190814
  Receipt Date: 20190814
  Transmission Date: 20200122
  Serious: No
  Sender: FDA-Public Use
  Company Number: None

PATIENT
  Age: 75 Year
  Sex: Female

DRUGS (1)
  1. PROLIA [Suspect]
     Active Substance: DENOSUMAB
     Route: 058
     Dates: start: 20170329

REACTIONS (8)
  - Cough [None]
  - Exostosis [None]
  - Pruritus [None]
  - Hypertonic bladder [None]
  - Dry skin [None]
  - Nephrolithiasis [None]
  - Weight decreased [None]
  - Peripheral swelling [None]

NARRATIVE: CASE EVENT DATE: 20190814
